FAERS Safety Report 20194960 (Version 1)
Quarter: 2021Q4

REPORT INFORMATION
  Report Type: Spontaneous
  Country: FR (occurrence: FR)
  Receive Date: 20211216
  Receipt Date: 20211216
  Transmission Date: 20220303
  Serious: Yes (Hospitalization, Other)
  Sender: FDA-Public Use
  Company Number: None

PATIENT
  Age: 77 Year
  Sex: Female

DRUGS (3)
  1. COMIRNATY [Suspect]
     Active Substance: TOZINAMERAN
     Indication: COVID-19 immunisation
     Dosage: DOSE 2, SINGLE
     Route: 030
     Dates: start: 20210304, end: 20210304
  2. PREGABALIN [Suspect]
     Active Substance: PREGABALIN
     Indication: Sciatica
     Dosage: 25 MG, 1X/DAY
     Dates: start: 202012, end: 20210411
  3. ATENOLOL [Concomitant]
     Active Substance: ATENOLOL

REACTIONS (18)
  - Hypertensive crisis [Recovering/Resolving]
  - Sleep apnoea syndrome [Not Recovered/Not Resolved]
  - Brain hypoxia [Unknown]
  - Hypertension [Recovering/Resolving]
  - Condition aggravated [Recovering/Resolving]
  - Fatigue [Unknown]
  - Malaise [Unknown]
  - Anxiety [Unknown]
  - Stress [Unknown]
  - Insomnia [Unknown]
  - Hot flush [Unknown]
  - Headache [Unknown]
  - Vaccination site pain [Unknown]
  - Cervicobrachial syndrome [Unknown]
  - Cognitive disorder [Unknown]
  - Ataxia [Unknown]
  - Heterophoria [Unknown]
  - Speech disorder [Unknown]

NARRATIVE: CASE EVENT DATE: 20210301
